FAERS Safety Report 17118122 (Version 1)
Quarter: 2019Q4

REPORT INFORMATION
  Report Type: Spontaneous
  Country: US (occurrence: US)
  Receive Date: 20191205
  Receipt Date: 20191205
  Transmission Date: 20200122
  Serious: No
  Sender: FDA-Public Use
  Company Number: US-TEVA-2019-US-1147762

PATIENT
  Age: 47 Year
  Sex: Female

DRUGS (2)
  1. CLONAZEPAM ORALLY DISINTEGRATING TABLETS [Suspect]
     Active Substance: CLONAZEPAM
     Indication: PANIC DISORDER
     Route: 048
     Dates: start: 20191126
  2. CLONAZEPAM ORALLY DISINTEGRATING TABLETS [Suspect]
     Active Substance: CLONAZEPAM
     Indication: INSOMNIA

REACTIONS (3)
  - Throat irritation [Unknown]
  - Abdominal rigidity [Unknown]
  - Throat tightness [Unknown]

NARRATIVE: CASE EVENT DATE: 20191126
